FAERS Safety Report 6865801-9 (Version None)
Quarter: 2010Q3

REPORT INFORMATION
  Report Type: 
  Country: None (occurrence: None)
  Receive Date: 20100720
  Receipt Date: 20100707
  Transmission Date: 20110219
  Serious: Yes (Death)
  Sender: FDA-Public Use
  Company Number: A-CH2010-37920

PATIENT
  Age: 72 Year
  Sex: Male

DRUGS (2)
  1. TRACLEER [Suspect]
     Indication: SYSTEMIC SCLEROSIS
     Dosage: 125 MG, BID, ORAL
     Route: 048
     Dates: start: 20100401, end: 20100601
  2. TRACLEER [Suspect]
     Indication: SYSTEMIC SCLEROSIS
     Dosage: 125 MG, BID, ORAL
     Route: 048
     Dates: start: 20100601

REACTIONS (2)
  - BILIARY SEPSIS [None]
  - LIVER FUNCTION TEST ABNORMAL [None]
